FAERS Safety Report 19376988 (Version 4)
Quarter: 2022Q3

REPORT INFORMATION
  Report Type: Report from Study
  Country: BR (occurrence: BR)
  Receive Date: 20210605
  Receipt Date: 20220916
  Transmission Date: 20221027
  Serious: Yes (Other)
  Sender: FDA-Public Use
  Company Number: BR-NOVARTISPH-NVSC2021BR089806

PATIENT
  Age: 40 Year
  Sex: Female

DRUGS (1)
  1. COSENTYX [Suspect]
     Active Substance: SECUKINUMAB
     Indication: Psoriasis
     Dosage: 300 MG, UNKNOWN
     Route: 065
     Dates: start: 20210326

REACTIONS (10)
  - Uterine infection [Recovering/Resolving]
  - Decreased immune responsiveness [Unknown]
  - Injection site haematoma [Recovering/Resolving]
  - COVID-19 [Recovered/Resolved]
  - Malaise [Recovering/Resolving]
  - Throat irritation [Recovering/Resolving]
  - Abdominal pain [Unknown]
  - Psoriasis [Unknown]
  - Skin haemorrhage [Unknown]
  - Skin lesion [Recovered/Resolved with Sequelae]

NARRATIVE: CASE EVENT DATE: 20210330
